FAERS Safety Report 8540952-1 (Version None)
Quarter: 2012Q3

REPORT INFORMATION
  Report Type: 
  Country: None (occurrence: None)
  Receive Date: 20120726
  Receipt Date: 20110810
  Transmission Date: 20120928
  Serious: No
  Sender: FDA-Public Use
  Company Number: US-ASTRAZENECA-2011SE48004

PATIENT
  Age: 41 Year
  Sex: Female
  Weight: 81.6 kg

DRUGS (6)
  1. SYNTHROID [Concomitant]
  2. ASPIRIN [Concomitant]
  3. WELLBUTRIN [Concomitant]
  4. FIORICET [Concomitant]
  5. SEROQUEL [Suspect]
     Indication: BIPOLAR DISORDER
     Route: 048
     Dates: start: 20110801
  6. KLONOPIN [Concomitant]

REACTIONS (6)
  - HOT FLUSH [None]
  - MIGRAINE [None]
  - CRYING [None]
  - AGITATION [None]
  - DEPRESSED MOOD [None]
  - ABNORMAL BEHAVIOUR [None]
